FAERS Safety Report 7095904-8 (Version None)
Quarter: 2010Q4

REPORT INFORMATION
  Report Type: 
  Country: None (occurrence: None)
  Receive Date: 20101109
  Receipt Date: 20101109
  Transmission Date: 20110411
  Serious: Yes (Hospitalization)
  Sender: FDA-Public Use
  Company Number: None

PATIENT
  Age: 77 Year
  Sex: Male

DRUGS (10)
  1. PHENYTOIN [Suspect]
     Indication: CONVULSION
     Dosage: 150MG TID PO
     Route: 048
  2. SIMVASTATIN [Concomitant]
  3. SEROQUEL [Concomitant]
  4. APAP TAB [Concomitant]
  5. INSULIN [Concomitant]
  6. IRON [Concomitant]
  7. PERCOCET [Concomitant]
  8. ACTOS [Concomitant]
  9. MOM [Concomitant]
  10. VIT C [Concomitant]

REACTIONS (1)
  - UNRESPONSIVE TO STIMULI [None]
